FAERS Safety Report 19256259 (Version 5)
Quarter: 2021Q3

REPORT INFORMATION
  Report Type: Report from Study
  Country: VN (occurrence: VN)
  Receive Date: 20210514
  Receipt Date: 20210917
  Transmission Date: 20211014
  Serious: Yes (Hospitalization)
  Sender: FDA-Public Use
  Company Number: NVSC2021VN093866

PATIENT
  Age: 29 Year
  Sex: Female

DRUGS (6)
  1. AIN457 [Suspect]
     Active Substance: SECUKINUMAB
     Indication: HIDRADENITIS
     Dosage: 300 MG, QMO
     Route: 058
     Dates: start: 20210113
  2. POVIDON IOD [Concomitant]
     Indication: HIDRADENITIS
     Dosage: UNK
     Route: 065
     Dates: start: 20191211
  3. FUCICORT [Concomitant]
     Active Substance: BETAMETHASONE VALERATE\FUSIDIC ACID
     Indication: DERMATITIS ATOPIC
     Dosage: UNK
     Route: 065
     Dates: start: 20210302
  4. NO TREATMENT RECEIVED [Suspect]
     Active Substance: UNSPECIFIED INGREDIENT
     Indication: HIDRADENITIS
     Dosage: NO TREATMENT
     Route: 065
  5. OXACILLIN [Concomitant]
     Active Substance: OXACILLIN SODIUM
     Indication: DERMATITIS ATOPIC
     Dosage: UNK
     Route: 065
     Dates: start: 20210302
  6. LEVOCETIRIZINE [Concomitant]
     Active Substance: LEVOCETIRIZINE
     Indication: DERMATITIS ATOPIC
     Dosage: UNK
     Route: 065
     Dates: start: 20210302

REACTIONS (1)
  - Dermatitis infected [Recovered/Resolved]

NARRATIVE: CASE EVENT DATE: 20210426
